FAERS Safety Report 9507309 (Version 1)
Quarter: 2013Q1

REPORT INFORMATION
  Report Type: Spontaneous
  Country: US (occurrence: None)
  Receive Date: 20130305
  Receipt Date: 20130305
  Transmission Date: 20140127
  Serious: Yes (Other)
  Sender: FDA-Public Use
  Company Number: 163-21880-12050033

PATIENT
  Age: 55 Year
  Sex: Male

DRUGS (2)
  1. REVLIMID (LENALIDOMIDE) (25 MILLIGRAM, CAPSULES) [Suspect]
     Indication: PLASMA CELL MYELOMA
     Dosage: OFF 7 DAYS
     Route: 048
     Dates: start: 20120425, end: 20120428
  2. WATER PILL (PILL) [Concomitant]

REACTIONS (5)
  - Hypersensitivity [None]
  - Rash pruritic [None]
  - Pyrexia [None]
  - Thinking abnormal [None]
  - Fluid retention [None]
